FAERS Safety Report 4707946-5 (Version None)
Quarter: 2005Q3

REPORT INFORMATION
  Report Type: 
  Country: None (occurrence: None)
  Receive Date: 20050705
  Receipt Date: 20050705
  Transmission Date: 20060218
  Serious: Yes (Hospitalization)
  Sender: FDA-Public Use
  Company Number: None

PATIENT
  Sex: Female
  Weight: 59 kg

DRUGS (2)
  1. ZELNORM [Suspect]
     Indication: INFLAMMATORY BOWEL DISEASE
     Dosage: 6MG   BID   ORAL
     Route: 048
  2. TRIPHASIC [Suspect]
     Dosage: 1MG   QDAY   ORAL
     Route: 048

REACTIONS (1)
  - COLITIS ISCHAEMIC [None]
